FAERS Safety Report 4517929-6 (Version None)
Quarter: 2004Q4

REPORT INFORMATION
  Report Type: 
  Country: None (occurrence: None)
  Receive Date: 20041201
  Receipt Date: 20041201
  Transmission Date: 20050328
  Serious: Yes (Death)
  Sender: FDA-Public Use
  Company Number: None

PATIENT
  Age: 4 Month
  Sex: Male
  Weight: 6.2143 kg

DRUGS (1)
  1. OXYCODONE [Suspect]
     Dosage: SEE TOXICOLOGY TABLE 1

REACTIONS (4)
  - BRONCHOPNEUMONIA [None]
  - DRUG TOXICITY [None]
  - MEDICATION ERROR [None]
  - OXYGEN SATURATION DECREASED [None]
